FAERS Safety Report 25390126 (Version 5)
Quarter: 2025Q3

REPORT INFORMATION
  Report Type: Spontaneous
  Country: US (occurrence: US)
  Receive Date: 20250603
  Receipt Date: 20250724
  Transmission Date: 20251020
  Serious: No
  Sender: PFIZER
  Company Number: US-PFIZER INC-202500111486

PATIENT
  Age: 16 Year
  Sex: Male
  Weight: 61.23 kg

DRUGS (2)
  1. GENOTROPIN [Suspect]
     Active Substance: SOMATROPIN
     Indication: Growth hormone deficiency
     Dosage: 2.2 MG, DAILY
     Route: 058
     Dates: start: 202406
  2. EOHILIA [Concomitant]
     Active Substance: BUDESONIDE
     Indication: Eosinophilic oesophagitis
     Dosage: 2 MG, DAILY
     Route: 048
     Dates: start: 2024

REACTIONS (3)
  - Device physical property issue [Unknown]
  - Device breakage [Unknown]
  - Drug dose omission by device [Unknown]

NARRATIVE: CASE EVENT DATE: 20250528
